FAERS Safety Report 6840341-1 (Version None)
Quarter: 2010Q3

REPORT INFORMATION
  Report Type: 
  Country: None (occurrence: None)
  Receive Date: 20100713
  Receipt Date: 20100713
  Transmission Date: 20110219
  Serious: Yes (Hospitalization)
  Sender: FDA-Public Use
  Company Number: None

PATIENT
  Age: 60 Year
  Sex: Male
  Weight: 90.3 kg

DRUGS (2)
  1. CLOZAPINE [Suspect]
     Indication: SCHIZOPHRENIA, PARANOID TYPE
     Dosage: 400 MG DAILY PO
     Route: 048
     Dates: start: 19961118, end: 20100702
  2. CHLORPROMAZINE [Suspect]
     Indication: SCHIZOPHRENIA, PARANOID TYPE
     Dosage: 200 MG HS PO
     Route: 048
     Dates: start: 20090904, end: 20100702

REACTIONS (3)
  - ILEUS [None]
  - PNEUMATOSIS INTESTINALIS [None]
  - PSYCHOTIC DISORDER [None]
